FAERS Safety Report 5494631-8 (Version None)
Quarter: 2007Q4

REPORT INFORMATION
  Report Type: 
  Country: None (occurrence: None)
  Receive Date: 20071024
  Receipt Date: 20070906
  Transmission Date: 20080405
  Serious: Yes (Death, Other)
  Sender: FDA-Public Use
  Company Number: US-ASTRAZENECA-2006UW18068

PATIENT
  Age: 39 Year
  Sex: Female

DRUGS (4)
  1. SEROQUEL [Suspect]
     Indication: SCHIZOPHRENIA
     Route: 048
     Dates: start: 20040101
  2. SEROQUEL [Suspect]
     Indication: INTERMITTENT EXPLOSIVE DISORDER
     Route: 048
     Dates: start: 20040101
  3. RISPERDAL [Suspect]
     Indication: SCHIZOPHRENIA
     Dates: start: 20000101, end: 20040101
  4. RISPERDAL [Suspect]
     Indication: INTERMITTENT EXPLOSIVE DISORDER
     Dates: start: 20000101, end: 20040101

REACTIONS (6)
  - DEATH [None]
  - DIABETIC KETOACIDOSIS [None]
  - GYNAECOMASTIA [None]
  - NEUROLEPTIC MALIGNANT SYNDROME [None]
  - PANCREATITIS [None]
  - TYPE 2 DIABETES MELLITUS [None]
